FAERS Safety Report 17139795 (Version 1)
Quarter: 2019Q4

REPORT INFORMATION
  Report Type: Spontaneous
  Country: FR (occurrence: FR)
  Receive Date: 20191211
  Receipt Date: 20191211
  Transmission Date: 20200122
  Serious: Yes (Hospitalization)
  Sender: FDA-Public Use
  Company Number: FR-ZYDUS-021469

PATIENT
  Age: 93 Year
  Sex: Female
  Weight: 55 kg

DRUGS (6)
  1. TRAMADOL. [Suspect]
     Active Substance: TRAMADOL
     Indication: HAEMORRHOIDS
     Route: 048
     Dates: start: 20171129
  2. BIPROFENID [Suspect]
     Active Substance: KETOPROFEN
     Indication: SEIZURE
     Route: 048
     Dates: start: 20171129
  3. ZOLPIDEM [Concomitant]
     Active Substance: ZOLPIDEM TARTRATE
  4. COAPROVEL [Concomitant]
     Active Substance: HYDROCHLOROTHIAZIDE\IRBESARTAN
  5. BISOPROLOL [Concomitant]
     Active Substance: BISOPROLOL
  6. ALPRAZOLAM. [Concomitant]
     Active Substance: ALPRAZOLAM

REACTIONS (1)
  - Suicidal ideation [Recovered/Resolved]

NARRATIVE: CASE EVENT DATE: 20171205
